FAERS Safety Report 25199985 (Version 3)
Quarter: 2025Q3

REPORT INFORMATION
  Report Type: Spontaneous
  Country: US (occurrence: US)
  Receive Date: 20250415
  Receipt Date: 20250702
  Transmission Date: 20251020
  Serious: No
  Sender: SANOFI AVENTIS
  Company Number: US-SA-2025SA105095

PATIENT
  Age: 43 Year
  Sex: Female
  Weight: 57.27 kg

DRUGS (4)
  1. DUPIXENT [Suspect]
     Active Substance: DUPILUMAB
     Indication: Sinusitis
     Dosage: 300 MG, QOW
     Route: 058
     Dates: end: 202407
  2. DUPIXENT [Suspect]
     Active Substance: DUPILUMAB
     Indication: Sinus polyp degeneration
     Dosage: 300 MG, QOW
     Route: 058
  3. TRANEXAMIC ACID [Concomitant]
     Active Substance: TRANEXAMIC ACID
  4. BUPROPION [Concomitant]
     Active Substance: BUPROPION

REACTIONS (9)
  - Asthma [Unknown]
  - Anosmia [Unknown]
  - Nasal congestion [Unknown]
  - Chest pain [Unknown]
  - Respiratory tract congestion [Unknown]
  - Illness [Unknown]
  - Laryngitis [Unknown]
  - Nasal polyps [Unknown]
  - Sinusitis [Unknown]

NARRATIVE: CASE EVENT DATE: 20250301
